FAERS Safety Report 23755051 (Version 6)
Quarter: 2024Q3

REPORT INFORMATION
  Report Type: Report from Study
  Country: US (occurrence: US)
  Receive Date: 20240418
  Receipt Date: 20240731
  Transmission Date: 20241016
  Serious: Yes (Hospitalization, Other)
  Sender: UCB
  Company Number: US-UCBSA-2024009152

PATIENT
  Sex: Female

DRUGS (3)
  1. ROZANOLIXIZUMAB [Suspect]
     Active Substance: ROZANOLIXIZUMAB
     Indication: Myasthenia gravis
     Dosage: 840 MILLIGRAM (6ML), WEEKLY (QW)  6 WEEKS
     Route: 058
     Dates: start: 20240205
  2. ROZANOLIXIZUMAB [Suspect]
     Active Substance: ROZANOLIXIZUMAB
     Dosage: 840 MILLIGRAM (6ML), WEEKLY (QW)  6 WEEKS (THIRD CYCLE)
     Route: 058
     Dates: start: 20240502
  3. ROZANOLIXIZUMAB [Suspect]
     Active Substance: ROZANOLIXIZUMAB
     Dosage: 840 MILLIGRAM (6ML), WEEKLY (QW)  6 WEEKS (THIRD CYCLE)
     Route: 058
     Dates: start: 20240711

REACTIONS (31)
  - Respiration abnormal [Not Recovered/Not Resolved]
  - Plasmapheresis [Unknown]
  - Pruritus [Unknown]
  - Burning sensation [Unknown]
  - Oxygen therapy [Unknown]
  - Arthralgia [Recovered/Resolved]
  - Headache [Recovering/Resolving]
  - Balance disorder [Recovering/Resolving]
  - Nausea [Not Recovered/Not Resolved]
  - Diarrhoea [Not Recovered/Not Resolved]
  - Pain [Recovering/Resolving]
  - Decreased appetite [Recovering/Resolving]
  - Vomiting [Not Recovered/Not Resolved]
  - Muscle spasms [Not Recovered/Not Resolved]
  - Pyrexia [Not Recovered/Not Resolved]
  - Chills [Not Recovered/Not Resolved]
  - Eating disorder [Unknown]
  - Speech disorder [Unknown]
  - Abdominal pain lower [Not Recovered/Not Resolved]
  - Dysarthria [Unknown]
  - Gait disturbance [Unknown]
  - Muscular weakness [Unknown]
  - Adverse event [Unknown]
  - Skin discolouration [Recovered/Resolved]
  - Urticaria [Recovered/Resolved]
  - Dysphagia [Recovering/Resolving]
  - Weight increased [Unknown]
  - Acne [Recovered/Resolved]
  - Therapeutic response shortened [Unknown]
  - Inappropriate schedule of product administration [Unknown]
  - Product dose omission issue [Unknown]

NARRATIVE: CASE EVENT DATE: 20240101
